FAERS Safety Report 18907770 (Version 2)
Quarter: 2021Q1

REPORT INFORMATION
  Report Type: Report from Study
  Country: US (occurrence: US)
  Receive Date: 20210218
  Receipt Date: 20210327
  Transmission Date: 20210420
  Serious: Yes (Other)
  Sender: FDA-Public Use
  Company Number: NVSC2021US030281

PATIENT
  Sex: Male

DRUGS (2)
  1. COSENTYX [Suspect]
     Active Substance: SECUKINUMAB
     Indication: PSORIASIS
     Dosage: 300 MG, QMO (ONCE EVERY 4 WEEKS)
     Route: 058
     Dates: start: 202012
  2. COSENTYX [Suspect]
     Active Substance: SECUKINUMAB
     Indication: PSORIATIC ARTHROPATHY

REACTIONS (4)
  - Psoriatic arthropathy [Recovering/Resolving]
  - Pain in extremity [Recovering/Resolving]
  - Erythema [Recovering/Resolving]
  - Psoriasis [Recovering/Resolving]
